FAERS Safety Report 17788962 (Version 1)
Quarter: 2020Q2

REPORT INFORMATION
  Report Type: Spontaneous
  Country: US (occurrence: US)
  Receive Date: 20200515
  Receipt Date: 20200515
  Transmission Date: 20200714
  Serious: No
  Sender: FDA-Public Use
  Company Number: US-009507513-2004USA005530

PATIENT
  Age: 47 Year
  Sex: Male

DRUGS (1)
  1. PROVENTIL [Suspect]
     Active Substance: ALBUTEROL
     Indication: ASTHMA
     Dosage: 1 OR 2 PUFFS AS NEEDED, EVERY 4 TO 6 HOURS
     Dates: start: 20020402, end: 20200402

REACTIONS (5)
  - Underdose [Unknown]
  - Incorrect dose administered by device [Unknown]
  - Product dose omission [Unknown]
  - Poor quality device used [Unknown]
  - Product quality issue [Unknown]

NARRATIVE: CASE EVENT DATE: 20200402
